FAERS Safety Report 5933331-4 (Version None)
Quarter: 2008Q4

REPORT INFORMATION
  Report Type: 
  Country: None (occurrence: None)
  Receive Date: 20081026
  Receipt Date: 20081009
  Transmission Date: 20090506
  Serious: Yes (Hospitalization)
  Sender: FDA-Public Use
  Company Number: 230500K08USA

PATIENT
  Age: 45 Year
  Sex: Female
  Weight: 84 kg

DRUGS (2)
  1. REBIF [Suspect]
     Indication: MULTIPLE SCLEROSIS
     Dosage: 44 MCG, 3 IN 1 WEEKS, SUBCUTANEOUS
     Route: 058
     Dates: start: 20080113, end: 20080801
  2. LYRICA [Concomitant]

REACTIONS (10)
  - ABDOMINAL PAIN [None]
  - DISEASE PROGRESSION [None]
  - GASTRIC ULCER [None]
  - GRAND MAL CONVULSION [None]
  - HEPATIC ENZYME INCREASED [None]
  - HEPATIC STEATOSIS [None]
  - HYPOAESTHESIA [None]
  - MULTIPLE SCLEROSIS [None]
  - TYPE 2 DIABETES MELLITUS [None]
  - VOMITING [None]
